FAERS Safety Report 8505793-X (Version None)
Quarter: 2012Q3

REPORT INFORMATION
  Report Type: 
  Country: None (occurrence: None)
  Receive Date: 20120712
  Receipt Date: 20120706
  Transmission Date: 20120928
  Serious: Yes (Death, Hospitalization)
  Sender: FDA-Public Use
  Company Number: US-BAYER-2012-013705

PATIENT
  Age: 47 Year
  Sex: Female
  Weight: 107 kg

DRUGS (5)
  1. YAZ [Suspect]
  2. YAZ [Suspect]
     Indication: ORAL CONTRACEPTION
     Dosage: UNK
     Dates: start: 20051128, end: 20100104
  3. YAZ [Suspect]
     Indication: PREMENSTRUAL SYNDROME
  4. YAZ [Suspect]
     Indication: ACNE
  5. SYNTHROID [Concomitant]
     Indication: THYROID DISORDER
     Dosage: 100 MCG/24HR, DAILY
     Dates: start: 20090109, end: 20100101

REACTIONS (7)
  - ANHEDONIA [None]
  - DEEP VEIN THROMBOSIS [None]
  - PAIN [None]
  - ANXIETY [None]
  - CARDIAC ARREST [None]
  - PULMONARY EMBOLISM [None]
  - INJURY [None]
